FAERS Safety Report 13609441 (Version 2)
Quarter: 2017Q2

REPORT INFORMATION
  Report Type: Spontaneous
  Country: US (occurrence: US)
  Receive Date: 20170602
  Receipt Date: 20170605
  Transmission Date: 20170830
  Serious: No
  Sender: FDA-Public Use
  Company Number: US-PFIZER INC-2968567

PATIENT
  Sex: Female

DRUGS (1)
  1. KETOROLAC TROMETHAMINE. [Suspect]
     Active Substance: KETOROLAC TROMETHAMINE
     Indication: DELIVERY
     Dosage: UNK
     Route: 037
     Dates: start: 20150101, end: 20150101

REACTIONS (4)
  - Product use issue [Recovered/Resolved]
  - Exposure during pregnancy [Recovered/Resolved]
  - Product use in unapproved indication [Recovered/Resolved]
  - No adverse event [Unknown]

NARRATIVE: CASE EVENT DATE: 20150101
